FAERS Safety Report 10155359 (Version 3)
Quarter: 2014Q2

REPORT INFORMATION
  Report Type: Spontaneous
  Country: DE (occurrence: DE)
  Receive Date: 20140506
  Receipt Date: 20140522
  Transmission Date: 20141212
  Serious: Yes (Hospitalization, Other)
  Sender: FDA-Public Use
  Company Number: DE-JNJFOC-20140401594

PATIENT
  Age: 74 Year
  Sex: Female
  Weight: 60 kg

DRUGS (3)
  1. XARELTO [Suspect]
     Indication: CEREBROVASCULAR ACCIDENT PROPHYLAXIS
     Route: 048
     Dates: start: 20140307, end: 20140308
  2. XARELTO [Suspect]
     Indication: ATRIAL FIBRILLATION
     Route: 048
     Dates: start: 20140307, end: 20140308
  3. AMIODARON [Concomitant]
     Route: 065
     Dates: start: 20140306, end: 20140306

REACTIONS (5)
  - Acute hepatic failure [Recovered/Resolved]
  - Transaminases increased [Recovered/Resolved]
  - Depressed level of consciousness [Recovered/Resolved]
  - Prothrombin time prolonged [Recovered/Resolved]
  - Blood cholinesterase decreased [Recovered/Resolved]
